FAERS Safety Report 7127974-2 (Version None)
Quarter: 2010Q4

REPORT INFORMATION
  Report Type: 
  Country: None (occurrence: None)
  Receive Date: 20101112
  Receipt Date: 20101102
  Transmission Date: 20110411
  Serious: Yes (Life-Threatening, Hospitalization, Disabling, Other)
  Sender: FDA-Public Use
  Company Number: ACO_20167_2010

PATIENT
  Age: 53 Year
  Sex: Female

DRUGS (6)
  1. AMPYRA [Suspect]
     Indication: MULTIPLE SCLEROSIS
     Dosage: 10 MG, Q 12 HRS, ORAL
     Route: 048
     Dates: start: 20100519
  2. PRISTIQ [Concomitant]
  3. HYDROCHLOROTHIAZIDE [Concomitant]
  4. PROSED EC (ATROPINE SULFATE, BENZOIC ACID, HYOSCYAMINE SULFATE,METHENA [Concomitant]
  5. DIAZEPAM [Concomitant]
  6. BACLOFEN [Concomitant]

REACTIONS (2)
  - CONDITION AGGRAVATED [None]
  - URINARY TRACT INFECTION [None]
